FAERS Safety Report 12663394 (Version 2)
Quarter: 2016Q3

REPORT INFORMATION
  Report Type: Spontaneous
  Country: JP (occurrence: JP)
  Receive Date: 20160818
  Receipt Date: 20160902
  Transmission Date: 20161109
  Serious: Yes (Death, Other)
  Sender: FDA-Public Use
  Company Number: JP-BAUSCH-BL-2016-019805

PATIENT
  Age: 73 Year
  Sex: Male

DRUGS (4)
  1. CISPLATIN. [Suspect]
     Active Substance: CISPLATIN
     Indication: MALIGNANT MELANOMA
     Dosage: 3 CYCLES
     Route: 065
     Dates: start: 2014
  2. DACARBAZINE. [Suspect]
     Active Substance: DACARBAZINE
     Indication: MALIGNANT MELANOMA
     Route: 065
     Dates: start: 2014
  3. FLUOROURACIL. [Suspect]
     Active Substance: FLUOROURACIL
     Indication: MALIGNANT MELANOMA
     Dosage: 3 CYCLES
     Route: 065
     Dates: start: 2014
  4. ONETAXOTERE [Suspect]
     Active Substance: DOCETAXEL
     Indication: MALIGNANT MELANOMA
     Dosage: 3 CYCLES
     Route: 065
     Dates: start: 2014

REACTIONS (3)
  - Malignant melanoma [Fatal]
  - General physical health deterioration [Unknown]
  - Metastases to lung [Recovered/Resolved]

NARRATIVE: CASE EVENT DATE: 2014
